FAERS Safety Report 24388108 (Version 1)
Quarter: 2024Q4

REPORT INFORMATION
  Report Type: Spontaneous
  Country: US (occurrence: US)
  Receive Date: 20241002
  Receipt Date: 20241002
  Transmission Date: 20250114
  Serious: No
  Sender: BAYER
  Company Number: US-BAYER-2024A139717

PATIENT
  Age: 52 Year
  Sex: Female

DRUGS (3)
  1. ASTEPRO [Suspect]
     Active Substance: AZELASTINE HYDROCHLORIDE
     Indication: Hypersensitivity
     Dosage: 2 DF
     Dates: start: 20240917, end: 20240917
  2. ASTEPRO [Suspect]
     Active Substance: AZELASTINE HYDROCHLORIDE
     Indication: Nasopharyngitis
  3. EXEMESTANE [Concomitant]
     Active Substance: EXEMESTANE

REACTIONS (2)
  - Dizziness [Recovered/Resolved]
  - Balance disorder [Recovered/Resolved]

NARRATIVE: CASE EVENT DATE: 20240917
